FAERS Safety Report 23769772 (Version 2)
Quarter: 2025Q3

REPORT INFORMATION
  Report Type: Report from Study
  Country: US (occurrence: US)
  Receive Date: 20240422
  Receipt Date: 20250730
  Transmission Date: 20251020
  Serious: No
  Sender: TAKEDA
  Company Number: US-TAKEDA-2024TUS037799

PATIENT
  Sex: Male

DRUGS (3)
  1. GLASSIA [Suspect]
     Active Substance: .ALPHA.1-PROTEINASE INHIBITOR HUMAN
     Indication: Alpha-1 antitrypsin deficiency
     Dosage: UNK UNK, 1/WEEK
     Dates: start: 202310
  2. GLASSIA [Suspect]
     Active Substance: .ALPHA.1-PROTEINASE INHIBITOR HUMAN
  3. PREDNISONE [Concomitant]
     Active Substance: PREDNISONE
     Indication: Cough

REACTIONS (3)
  - Productive cough [Recovering/Resolving]
  - Chest discomfort [Unknown]
  - Dyspnoea [Unknown]
